FAERS Safety Report 23706302 (Version 1)
Quarter: 2024Q2

REPORT INFORMATION
  Report Type: Spontaneous
  Country: CN (occurrence: CN)
  Receive Date: 20240404
  Receipt Date: 20240404
  Transmission Date: 20240715
  Serious: Yes (Other)
  Sender: FDA-Public Use
  Company Number: CN-MYLANLABS-2024M1029755

PATIENT
  Age: 75 Year
  Sex: Female
  Weight: 55 kg

DRUGS (6)
  1. LIPITOR [Suspect]
     Active Substance: ATORVASTATIN CALCIUM
     Indication: Hyperlipidaemia
     Dosage: 20 MILLIGRAM, QD
     Route: 048
     Dates: start: 20240311, end: 20240316
  2. FLUNARIZINE HYDROCHLORIDE [Suspect]
     Active Substance: FLUNARIZINE HYDROCHLORIDE
     Indication: Vertigo CNS origin
     Dosage: 5 MILLIGRAM, QD
     Route: 048
     Dates: start: 20240311, end: 20240316
  3. ASPIRIN [Suspect]
     Active Substance: ASPIRIN
     Indication: Cerebral infarction
     Dosage: 30 MILLIGRAM, QD
     Route: 048
     Dates: start: 20240311, end: 20240316
  4. GASTRODIN [Concomitant]
     Active Substance: GASTRODIN
     Indication: Vasodilatation
     Dosage: 600 MILLIGRAM, QD
     Route: 042
     Dates: start: 20240311, end: 20240316
  5. PAPAVERINE HYDROCHLORIDE [Concomitant]
     Active Substance: PAPAVERINE HYDROCHLORIDE
     Indication: Angiopathy
     Dosage: 90 MILLIGRAM, QD
     Route: 042
     Dates: start: 20240311, end: 20240316
  6. BETAHISTINE HYDROCHLORIDE [Concomitant]
     Active Substance: BETAHISTINE HYDROCHLORIDE
     Indication: Vertigo CNS origin
     Dosage: 30 MILLIGRAM, QD
     Route: 042
     Dates: start: 20240311, end: 20240316

REACTIONS (1)
  - Vomiting [Recovering/Resolving]

NARRATIVE: CASE EVENT DATE: 20240316
